FAERS Safety Report 11805242 (Version 2)
Quarter: 2015Q4

REPORT INFORMATION
  Report Type: Spontaneous
  Country: JP (occurrence: JP)
  Receive Date: 20151206
  Receipt Date: 20151210
  Transmission Date: 20160305
  Serious: Yes (Other)
  Sender: FDA-Public Use
  Company Number: JP-MYLANLABS-2015M1042951

PATIENT

DRUGS (9)
  1. BENZYLPENICILLIN [Concomitant]
     Active Substance: PENICILLIN G
     Indication: WOUND
     Route: 065
  2. DANTROLENE [Suspect]
     Active Substance: DANTROLENE
     Indication: TETANUS
     Dosage: 75 MG/DAY
     Route: 065
  3. MAGNESIUM [Suspect]
     Active Substance: MAGNESIUM
     Indication: BLOOD PRESSURE FLUCTUATION
     Dosage: 5MEQ/H
     Route: 065
  4. MIDAZOLAM [Concomitant]
     Active Substance: MIDAZOLAM\MIDAZOLAM HYDROCHLORIDE
     Indication: SEIZURE
     Dosage: 5 MG/H
     Route: 065
  5. ROCURONIUM BROMIDE. [Suspect]
     Active Substance: ROCURONIUM BROMIDE
     Indication: TETANUS
     Dosage: 5MICROG/KG/MIN
     Route: 065
  6. PROPOFOL. [Concomitant]
     Active Substance: PROPOFOL
     Indication: SEIZURE
     Route: 065
  7. TETANUS IMMUNE GLOBULIN (HUMAN) [Concomitant]
     Active Substance: HUMAN CLOSTRIDIUM TETANI TOXOID IMMUNE GLOBULIN
     Indication: TETANUS
     Dosage: 2750 U
     Route: 065
  8. DIAZEPAM. [Concomitant]
     Active Substance: DIAZEPAM
     Indication: SEIZURE
     Route: 065
  9. MORPHINE [Concomitant]
     Active Substance: MORPHINE
     Indication: SEIZURE
     Dosage: 2 MG/H
     Route: 065

REACTIONS (1)
  - Cheyne-Stokes respiration [Recovered/Resolved]
